FAERS Safety Report 23273777 (Version 5)
Quarter: 2023Q4

REPORT INFORMATION
  Report Type: Report from Study
  Country: US (occurrence: US)
  Receive Date: 20231207
  Receipt Date: 20231227
  Transmission Date: 20240110
  Serious: Yes (Hospitalization, Other)
  Sender: FDA-Public Use
  Company Number: US-JNJFOC-20231118531

PATIENT
  Age: 74 Year
  Sex: Female
  Weight: 72.7 kg

DRUGS (5)
  1. EPOPROSTENOL SODIUM [Suspect]
     Active Substance: EPOPROSTENOL SODIUM
     Indication: Pulmonary hypertension
     Dosage: VELETRI 0.5MG VIAL INTRAVENOUS
     Route: 042
  2. EPOPROSTENOL SODIUM [Suspect]
     Active Substance: EPOPROSTENOL SODIUM
     Dosage: VELETRI 1.5MG VIAL INTRAVENOUS
     Route: 042
  3. SILDENAFIL CITRATE [Concomitant]
     Active Substance: SILDENAFIL CITRATE
  4. ELIQUIS [Concomitant]
     Active Substance: APIXABAN
  5. OPSUMIT [Concomitant]
     Active Substance: MACITENTAN

REACTIONS (9)
  - Fall [Unknown]
  - Haematoma [Unknown]
  - Haemoglobin decreased [Unknown]
  - Bacteraemia [Unknown]
  - Thrombosis in device [Unknown]
  - Hospitalisation [Unknown]
  - Device occlusion [Not Recovered/Not Resolved]
  - Diarrhoea [Unknown]
  - Product administration interrupted [Unknown]

NARRATIVE: CASE EVENT DATE: 20231130
